FAERS Safety Report 8474704-8 (Version None)
Quarter: 2012Q2

REPORT INFORMATION
  Report Type: 
  Country: None (occurrence: None)
  Receive Date: 20120622
  Receipt Date: 20120613
  Transmission Date: 20120825
  Serious: Yes (Hospitalization)
  Sender: FDA-Public Use
  Company Number: 1291703

PATIENT
  Sex: Female

DRUGS (5)
  1. CARBOPLATIN [Suspect]
     Indication: NON-SMALL CELL LUNG CANCER
     Dosage: 350 MG MILLIGRAM(S), INTRAVENOUS (NOT OTHERWISE SPECIFIED)
     Route: 042
  2. AVASTIN [Suspect]
     Indication: NON-SMALL CELL LUNG CANCER
     Dosage: 400 MG MILLGRAM(S), INTRAVENOUS (NOT OTHERWISE SPECIFIED)
     Route: 042
     Dates: start: 20120307, end: 20120307
  3. EMPERAL [Concomitant]
  4. PREDNISOLON NAUSEA (NAUSEA) /00016201/ [Concomitant]
  5. VINORELBINE [Suspect]
     Indication: NON-SMALL CELL LUNG CANCER
     Dosage: 80 MG MILLIGRAM(S), ORAL

REACTIONS (11)
  - LIMB INJURY [None]
  - WOUND NECROSIS [None]
  - ESCHERICHIA TEST POSITIVE [None]
  - THERMAL BURN [None]
  - SEPSIS [None]
  - PSEUDOMONAS TEST POSITIVE [None]
  - FALL [None]
  - IMPAIRED HEALING [None]
  - STREPTOCOCCAL INFECTION [None]
  - ACCIDENT [None]
  - WOUND [None]
